FAERS Safety Report 11215431 (Version 1)
Quarter: 2015Q2

REPORT INFORMATION
  Report Type: Spontaneous
  Country: US (occurrence: None)
  Receive Date: 20150609
  Receipt Date: 20150609
  Transmission Date: 20150821
  Serious: Yes (Hospitalization)
  Sender: FDA-Public Use
  Company Number: 2015ST000042

PATIENT
  Age: 28 Year
  Sex: Female
  Weight: 65.8 kg

DRUGS (10)
  1. BARINERT (COMPLEMENT C1 ESTERASE INHIBITOR) [Concomitant]
  2. DILAUDID [Concomitant]
     Active Substance: HYDROMORPHONE HYDROCHLORIDE
  3. NEXIUM [Concomitant]
     Active Substance: ESOMEPRAZOLE MAGNESIUM
  4. REMICADE [Concomitant]
     Active Substance: INFLIXIMAB
  5. STERILE WATER (WATER FOR INJECTION) [Concomitant]
  6. DEPO-PROVERA [Concomitant]
     Active Substance: MEDROXYPROGESTERONE ACETATE
  7. EPIPEN [Concomitant]
     Active Substance: EPINEPHRINE
  8. RUCONEST [Suspect]
     Active Substance: HUMAN C1-ESTERASE INHIBITOR
     Indication: COMPLEMENT FACTOR ABNORMAL
     Route: 042
     Dates: start: 20150225
  9. SODIUM CHLORIDE (SODIUM CHLORIDE) [Concomitant]
     Active Substance: SODIUM CHLORIDE
  10. ZOFRAN (ONDANSETRON) [Concomitant]

REACTIONS (1)
  - Abdominal pain [None]

NARRATIVE: CASE EVENT DATE: 2015
